FAERS Safety Report 5596322-1 (Version None)
Quarter: 2007Q4

REPORT INFORMATION
  Report Type: 
  Country: None (occurrence: None)
  Receive Date: 20071218
  Receipt Date: 20070508
  Transmission Date: 20080405
  Serious: Yes (Hospitalization, Other)
  Sender: FDA-Public Use
  Company Number: 2006128964

PATIENT
  Sex: Female

DRUGS (3)
  1. BEXTRA [Suspect]
     Indication: ARTHRALGIA
     Dosage: 10 MG (10 MG,1 IN 1 D),ORAL
     Route: 048
     Dates: start: 20021003
  2. CELEBREX [Suspect]
     Indication: PAIN
     Dosage: 100 MG (100 MG,1 IN 1 D)
     Dates: start: 20040601, end: 20041001
  3. VIOXX [Suspect]
     Dosage: ORAL
     Route: 048
     Dates: start: 20040301, end: 20040701

REACTIONS (1)
  - CARDIAC FAILURE CONGESTIVE [None]
